FAERS Safety Report 15934022 (Version 1)
Quarter: 2019Q1

REPORT INFORMATION
  Report Type: Report from Study
  Country: CA (occurrence: CA)
  Receive Date: 20190207
  Receipt Date: 20190207
  Transmission Date: 20190417
  Serious: Yes (Other)
  Sender: FDA-Public Use
  Company Number: PHHY2018CA075632

PATIENT
  Age: 65 Year
  Sex: Female

DRUGS (2)
  1. ERELZI [Suspect]
     Active Substance: ETANERCEPT-SZZS
     Dosage: 50 MG, QW
     Route: 058
     Dates: start: 20181005
  2. ERELZI [Suspect]
     Active Substance: ETANERCEPT-SZZS
     Indication: RHEUMATOID ARTHRITIS
     Dosage: 50 MG QW
     Route: 058
     Dates: start: 20180811

REACTIONS (7)
  - Inflammation [Unknown]
  - Injection site pruritus [Recovered/Resolved]
  - Mobility decreased [Unknown]
  - Injection site bruising [Unknown]
  - Muscular weakness [Unknown]
  - Injection site pain [Unknown]
  - Joint swelling [Unknown]

NARRATIVE: CASE EVENT DATE: 20180811
